FAERS Safety Report 19064768 (Version 1)
Quarter: 2021Q1

REPORT INFORMATION
  Report Type: Spontaneous
  Country: FR (occurrence: FR)
  Receive Date: 20210326
  Receipt Date: 20210326
  Transmission Date: 20210420
  Serious: Yes (Other)
  Sender: FDA-Public Use
  Company Number: FR-ADMA BIOLOGICS INC.-FR-2021ADM000005

PATIENT
  Age: 52 Year
  Sex: Female

DRUGS (2)
  1. HUMAN IMMUNOGLOBULIN (IMMUNOGLOBULIN G HUMAN) [Suspect]
     Active Substance: HUMAN IMMUNOGLOBULIN G
     Indication: HAEMATOMA MUSCLE
     Dosage: 2 G/KG.BW, RANGE 1?4
  2. ROMIPLOSTIM [Concomitant]
     Active Substance: ROMIPLOSTIM
     Indication: HAEMATOMA MUSCLE
     Dosage: 10 UG/KG/BW/WEEK

REACTIONS (2)
  - Pulmonary embolism [Unknown]
  - Deep vein thrombosis [Unknown]
